FAERS Safety Report 18958717 (Version 1)
Quarter: 2021Q1

REPORT INFORMATION
  Report Type: Spontaneous
  Country: ES (occurrence: ES)
  Receive Date: 20210302
  Receipt Date: 20210302
  Transmission Date: 20210420
  Serious: Yes (Other)
  Sender: FDA-Public Use
  Company Number: ES-JAZZ-2021-ES-003318

PATIENT

DRUGS (1)
  1. VYXEOS [Suspect]
     Active Substance: CYTARABINE\DAUNORUBICIN
     Indication: POLYCYTHAEMIA VERA
     Dosage: INDUCTION

REACTIONS (4)
  - Disease progression [Recovering/Resolving]
  - Polycythaemia vera [Recovering/Resolving]
  - Aplasia [Recovering/Resolving]
  - Off label use [Unknown]
